FAERS Safety Report 6637617-X (Version None)
Quarter: 2010Q1

REPORT INFORMATION
  Report Type: 
  Country: None (occurrence: None)
  Receive Date: 20100317
  Receipt Date: 20100305
  Transmission Date: 20100710
  Serious: Yes (Hospitalization)
  Sender: FDA-Public Use
  Company Number: ES-SP-E2010-01018

PATIENT
  Age: 54 Year
  Sex: Male

DRUGS (3)
  1. IMMUNE GLOBULIN (HUMAN) [Suspect]
     Indication: IMMUNISATION
     Route: 065
     Dates: start: 20100101, end: 20100101
  2. RABIES VACCINE [Suspect]
     Indication: IMMUNISATION
     Route: 030
     Dates: start: 20100103, end: 20100103
  3. AUGMENTIN '125' [Suspect]
     Indication: ANIMAL BITE
     Route: 048
     Dates: start: 20100101

REACTIONS (3)
  - DIZZINESS [None]
  - PARAESTHESIA [None]
  - VISION BLURRED [None]
